FAERS Safety Report 11743472 (Version 7)
Quarter: 2017Q2

REPORT INFORMATION
  Report Type: Spontaneous
  Country: US (occurrence: US)
  Receive Date: 20151116
  Receipt Date: 20170519
  Transmission Date: 20170829
  Serious: Yes (Hospitalization, Disabling, Other)
  Sender: FDA-Public Use
  Company Number: US-009507513-1511USA008386

PATIENT
  Sex: Female
  Weight: 57.14 kg

DRUGS (5)
  1. OMEGA-3 MARINE TRIGLYCERIDES [Concomitant]
     Active Substance: FISH OIL
     Dosage: 1000-2000MG DAILY
     Route: 048
     Dates: start: 2000
  2. FOSAMAX [Suspect]
     Active Substance: ALENDRONATE SODIUM
     Indication: OSTEOPOROSIS
     Dosage: 70 MG, QW
     Route: 048
     Dates: start: 2002, end: 200412
  3. FOSAMAX PLUS D [Suspect]
     Active Substance: ALENDRONATE SODIUM\CHOLECALCIFEROL
     Indication: OSTEOPOROSIS
     Dosage: 70 MG/2800 IU QW
     Route: 048
     Dates: start: 200606, end: 20120126
  4. ACTONEL [Suspect]
     Active Substance: RISEDRONATE SODIUM
     Indication: OSTEOPOROSIS
     Dosage: 35 MG, QW
     Route: 048
     Dates: start: 200308
  5. FOSAMAX [Suspect]
     Active Substance: ALENDRONATE SODIUM
     Dosage: 70 MG, QW
     Route: 048
     Dates: start: 20051126, end: 200606

REACTIONS (40)
  - Haemoglobin decreased [Unknown]
  - Vitamin D deficiency [Unknown]
  - Lumbar spinal stenosis [Unknown]
  - Osteoarthritis [Unknown]
  - Anaemia of chronic disease [Unknown]
  - Middle insomnia [Unknown]
  - Limb injury [Recovering/Resolving]
  - Femur fracture [Not Recovered/Not Resolved]
  - Haematocrit decreased [Recovering/Resolving]
  - Paraesthesia [Unknown]
  - Back pain [Unknown]
  - Muscle spasms [Unknown]
  - Chronic kidney disease [Not Recovered/Not Resolved]
  - Hypercholesterolaemia [Unknown]
  - Bursitis [Unknown]
  - Pain [Not Recovered/Not Resolved]
  - Urinary tract disorder [Recovering/Resolving]
  - Osteoporosis [Not Recovered/Not Resolved]
  - Tooth extraction [Unknown]
  - Hypercalcaemia [Unknown]
  - Insomnia [Unknown]
  - Palpitations [Unknown]
  - Essential hypertension [Unknown]
  - Tooth fracture [Unknown]
  - Osteopenia [Unknown]
  - Anaemia postoperative [Unknown]
  - Muscle strain [Unknown]
  - Type 2 diabetes mellitus [Unknown]
  - Hypoaesthesia [Unknown]
  - Sinus congestion [Unknown]
  - Rash [Unknown]
  - Myocardial ischaemia [Unknown]
  - Femur fracture [Not Recovered/Not Resolved]
  - Tooth disorder [Unknown]
  - Anxiety [Unknown]
  - Blister [Recovering/Resolving]
  - Oropharyngeal pain [Unknown]
  - Cough [Unknown]
  - Dizziness [Unknown]
  - Headache [Unknown]

NARRATIVE: CASE EVENT DATE: 200308
